FAERS Safety Report 12455173 (Version 1)
Quarter: 2016Q2

REPORT INFORMATION
  Report Type: Spontaneous
  Country: US (occurrence: None)
  Receive Date: 20160609
  Receipt Date: 20160609
  Transmission Date: 20160815
  Serious: Yes (Disabling)
  Sender: FDA-Public Use
  Company Number: None

PATIENT
  Age: 62 Year
  Sex: Female
  Weight: 68.04 kg

DRUGS (1)
  1. BETAMETHASONE DIPROPIONATE, 0.05% [Suspect]
     Active Substance: BETAMETHASONE DIPROPIONATE
     Indication: PSORIASIS
     Route: 061
     Dates: start: 20140902, end: 20140905

REACTIONS (6)
  - Skin exfoliation [None]
  - Skin fissures [None]
  - Hypersensitivity [None]
  - Activities of daily living impaired [None]
  - Pain [None]
  - Psoriasis [None]

NARRATIVE: CASE EVENT DATE: 20140902
